FAERS Safety Report 15014483 (Version 1)
Quarter: 2018Q2

REPORT INFORMATION
  Report Type: Spontaneous
  Country: US (occurrence: US)
  Receive Date: 20180615
  Receipt Date: 20180615
  Transmission Date: 20180711
  Serious: Yes (Other)
  Sender: FDA-Public Use
  Company Number: US-BRISTOL-MYERS SQUIBB COMPANY-BMS-2018-053580

PATIENT
  Age: 70 Year
  Sex: Female

DRUGS (2)
  1. OPDIVO [Suspect]
     Active Substance: NIVOLUMAB
     Indication: VULVAL CANCER
     Dosage: 239 MG, Q2WK
     Route: 042
     Dates: start: 20180327
  2. YERVOY [Suspect]
     Active Substance: IPILIMUMAB
     Indication: VULVAL CANCER
     Dosage: 80 MG, Q3WK
     Route: 042
     Dates: start: 20180327

REACTIONS (2)
  - Product use in unapproved indication [Unknown]
  - Hospice care [Unknown]

NARRATIVE: CASE EVENT DATE: 20180420
